FAERS Safety Report 8021460-3 (Version None)
Quarter: 2011Q4

REPORT INFORMATION
  Report Type: 
  Country: None (occurrence: None)
  Receive Date: 20111230
  Receipt Date: 20111230
  Transmission Date: 20120403
  Serious: Yes (Other)
  Sender: FDA-Public Use
  Company Number: None

PATIENT
  Sex: Female

DRUGS (3)
  1. ACTEMRA [Suspect]
  2. ACTEMRA [Suspect]
  3. ACTEMRA [Suspect]
     Indication: RHEUMATOID ARTHRITIS
     Dosage: 680MG Q MONTH IV
     Route: 042
     Dates: start: 20110712, end: 20111101

REACTIONS (1)
  - DRUG HYPERSENSITIVITY [None]
